FAERS Safety Report 15180210 (Version 2)
Quarter: 2018Q3

REPORT INFORMATION
  Report Type: Spontaneous
  Country: DE (occurrence: DE)
  Receive Date: 20180723
  Receipt Date: 20180917
  Transmission Date: 20181010
  Serious: Yes (Other)
  Sender: FDA-Public Use
  Company Number: DE-BRISTOL-MYERS SQUIBB COMPANY-BMS-2018-068015

PATIENT
  Age: 95 Year
  Sex: Female
  Weight: 71 kg

DRUGS (16)
  1. KALINOR?BRAUSETABLETTEN [Concomitant]
     Active Substance: POTASSIUM CARBONATE\POTASSIUM CITRATE
     Indication: BRADYARRHYTHMIA
     Dosage: UNK, QD, IN THE MORNING
     Route: 065
  2. MAGNESIUM VERLA N                  /01455601/ [Concomitant]
     Indication: MUSCLE SPASMS
     Dosage: UNK, TID, MORNING, NOON, EVENING
     Route: 065
  3. VALSARTAN AL [Concomitant]
     Indication: HYPERTENSION
     Dosage: 0.5 DF, QD
     Route: 065
  4. IBUPROFEN STADA [Concomitant]
     Indication: SINUS HEADACHE
     Dosage: TID, AS NEEDED
     Route: 065
  5. ELIQUIS [Suspect]
     Active Substance: APIXABAN
     Indication: PRODUCT USED FOR UNKNOWN INDICATION
     Dosage: 2.5 MG, QD
     Route: 065
     Dates: start: 20180710, end: 20180712
  6. KORODIN                            /00642501/ [Concomitant]
     Indication: CARDIOVASCULAR DISORDER
     Dosage: 10 DF, TID, AS NEEDED
     Route: 065
  7. SPIRONOLACTON [Concomitant]
     Active Substance: SPIRONOLACTONE
     Indication: ADVERSE EVENT
     Route: 065
  8. NITROLINGUAL [Concomitant]
     Active Substance: NITROGLYCERIN
     Indication: ANGINA PECTORIS
     Dosage: UNK, PRN
     Route: 065
  9. SPIRONOLACTON [Concomitant]
     Active Substance: SPIRONOLACTONE
     Indication: CARDIAC FAILURE
     Dosage: UNK, QD,MORNING
     Route: 065
  10. TAVOR (LORAZEPAM) [Concomitant]
     Active Substance: LORAZEPAM
     Indication: PRODUCT USED FOR UNKNOWN INDICATION
     Dosage: UNK, QD, EVENING AS NEEDED
     Route: 065
  11. FUROSEMID STADA                    /00032601/ [Concomitant]
     Indication: CARDIAC FAILURE
     Dosage: UNK, TID, 2?1?0
     Route: 065
  12. ELIQUIS [Suspect]
     Active Substance: APIXABAN
     Indication: CEREBROVASCULAR ACCIDENT PROPHYLAXIS
     Dosage: 2.5 MG, UNK
     Route: 065
  13. BROMAZEPAM RATIOPHARM [Concomitant]
     Indication: SLEEP DISORDER
     Dosage: 1 DF, PRN
     Route: 065
  14. ELIQUIS [Suspect]
     Active Substance: APIXABAN
     Indication: PRODUCT USED FOR UNKNOWN INDICATION
     Dosage: 2.5 MG, BID
     Route: 065
     Dates: start: 20180111, end: 20180709
  15. MELNEURIN [Concomitant]
     Active Substance: MELPERONE HYDROCHLORIDE
     Indication: RESTLESSNESS
     Dosage: 5 ML, PRN
     Route: 065
  16. ISOKET [Concomitant]
     Active Substance: ISOSORBIDE DINITRATE
     Indication: ANGINA PECTORIS
     Dosage: 20 MG, BID, MORNING, EVENING
     Route: 065

REACTIONS (5)
  - Renal failure [Unknown]
  - Haemorrhagic anaemia [Unknown]
  - Skin abrasion [Recovered/Resolved]
  - Off label use [Unknown]
  - Haemorrhage [Recovered/Resolved]

NARRATIVE: CASE EVENT DATE: 20180708
